FAERS Safety Report 12838914 (Version 1)
Quarter: 2016Q4

REPORT INFORMATION
  Report Type: Spontaneous
  Country: US (occurrence: US)
  Receive Date: 20161010
  Receipt Date: 20161010
  Transmission Date: 20170207
  Serious: Yes (Disabling, Other)
  Sender: FDA-Public Use
  Company Number: None

PATIENT
  Age: 7 Year
  Sex: Female
  Weight: 20.7 kg

DRUGS (7)
  1. SINGULAIR [Suspect]
     Active Substance: MONTELUKAST SODIUM
     Indication: SEASONAL ALLERGY
     Dosage: ?          QUANTITY:1 TABLET(S);?
     Route: 048
     Dates: start: 20140311, end: 20141106
  2. ZYRTEC [Concomitant]
     Active Substance: CETIRIZINE HYDROCHLORIDE
  3. MIRALAX [Concomitant]
     Active Substance: POLYETHYLENE GLYCOL 3350
  4. DITROPAN [Concomitant]
     Active Substance: OXYBUTYNIN CHLORIDE
  5. ELIDEL [Concomitant]
     Active Substance: PIMECROLIMUS
  6. MULTIVITAMIN [Concomitant]
     Active Substance: VITAMINS
  7. KENALOG [Concomitant]
     Active Substance: TRIAMCINOLONE ACETONIDE

REACTIONS (9)
  - Fear [None]
  - Insomnia [None]
  - Nightmare [None]
  - Growth retardation [None]
  - Anxiety [None]
  - Anger [None]
  - Weight increased [None]
  - Eating disorder [None]
  - Enuresis [None]

NARRATIVE: CASE EVENT DATE: 20140519
